FAERS Safety Report 8465647-4 (Version None)
Quarter: 2012Q2

REPORT INFORMATION
  Report Type: 
  Country: None (occurrence: None)
  Receive Date: 20120619
  Receipt Date: 20120531
  Transmission Date: 20120825
  Serious: Yes (Other)
  Sender: FDA-Public Use
  Company Number: JPI-P-021769

PATIENT
  Age: 71 Year
  Sex: Female

DRUGS (1)
  1. XYREM [Suspect]
     Indication: HYPERSOMNIA
     Dosage: 6 GM (3 GM,2 IN 1 D),ORAL
     Route: 048
     Dates: start: 20100422

REACTIONS (22)
  - FEELING ABNORMAL [None]
  - ASTHENIA [None]
  - SENSATION OF HEAVINESS [None]
  - FEELING JITTERY [None]
  - NAUSEA [None]
  - FEELING HOT [None]
  - INITIAL INSOMNIA [None]
  - CLUSTER HEADACHE [None]
  - EMPHYSEMA [None]
  - WEIGHT DECREASED [None]
  - HYPERHIDROSIS [None]
  - ABDOMINAL DISCOMFORT [None]
  - HYPERTENSION [None]
  - CONDITION AGGRAVATED [None]
  - URINE ODOUR ABNORMAL [None]
  - SKIN ODOUR ABNORMAL [None]
  - INTERSTITIAL LUNG DISEASE [None]
  - DIZZINESS [None]
  - INFLUENZA LIKE ILLNESS [None]
  - PYREXIA [None]
  - HEADACHE [None]
  - DECREASED APPETITE [None]
